FAERS Safety Report 5310394-0 (Version None)
Quarter: 2007Q2

REPORT INFORMATION
  Report Type: 
  Country: None (occurrence: None)
  Receive Date: 20070423
  Receipt Date: 20070411
  Transmission Date: 20071010
  Serious: No
  Sender: FDA-Public Use
  Company Number: 155221ISR

PATIENT
  Age: 91 Year
  Sex: Female

DRUGS (1)
  1. AMOXI-CLAVULANICO [Suspect]
     Indication: LOWER RESPIRATORY TRACT INFECTION
     Dosage: 1875 MG (625 MG, 3 IN 1 D), ORAL
     Route: 048
     Dates: start: 20070228, end: 20070306

REACTIONS (2)
  - JAUNDICE [None]
  - LIVER FUNCTION TEST ABNORMAL [None]
